FAERS Safety Report 6128264-7 (Version None)
Quarter: 2009Q1

REPORT INFORMATION
  Report Type: 
  Country: None (occurrence: None)
  Receive Date: 20090319
  Receipt Date: 20090304
  Transmission Date: 20090719
  Serious: Yes (Life-Threatening, Hospitalization)
  Sender: FDA-Public Use
  Company Number: 216863

PATIENT
  Age: 63 Year

DRUGS (5)
  1. METHOTREXATE [Suspect]
     Indication: RHEUMATOID ARTHRITIS
  2. (GOLD) [Concomitant]
  3. IBUPROFEN [Concomitant]
  4. PREDNISOLONE [Concomitant]
  5. TRAMADOL HCL [Concomitant]

REACTIONS (10)
  - CHEST DISCOMFORT [None]
  - CHEST PAIN [None]
  - COUGH [None]
  - HAEMOGLOBIN DECREASED [None]
  - INFECTION [None]
  - OXYGEN SATURATION DECREASED [None]
  - PNEUMONITIS [None]
  - RESPIRATORY FAILURE [None]
  - RIB FRACTURE [None]
  - ROAD TRAFFIC ACCIDENT [None]
